FAERS Safety Report 14181713 (Version 3)
Quarter: 2018Q1

REPORT INFORMATION
  Report Type: Report from Study
  Country: FR (occurrence: FR)
  Receive Date: 20171113
  Receipt Date: 20180119
  Transmission Date: 20180508
  Serious: Yes (Death, Other)
  Sender: FDA-Public Use
  Company Number: FR-BRISTOL-MYERS SQUIBB COMPANY-BMS-2017-101518

PATIENT
  Age: 48 Year
  Sex: Male
  Weight: 49 kg

DRUGS (1)
  1. NIVOLUMAB [Suspect]
     Active Substance: NIVOLUMAB
     Indication: SQUAMOUS CELL CARCINOMA OF HEAD AND NECK
     Dosage: 138 MG, UNK
     Route: 042
     Dates: start: 20171005, end: 20171005

REACTIONS (2)
  - Respiratory failure [Fatal]
  - Lung infection [Fatal]

NARRATIVE: CASE EVENT DATE: 20171015
